FAERS Safety Report 16541801 (Version 2)
Quarter: 2019Q3

REPORT INFORMATION
  Report Type: Spontaneous
  Country: TR (occurrence: TR)
  Receive Date: 20190708
  Receipt Date: 20190912
  Transmission Date: 20191004
  Serious: Yes (Hospitalization, Other)
  Sender: FDA-Public Use
  Company Number: PHHY2019TR155899

PATIENT
  Age: 12 Year
  Sex: Female

DRUGS (2)
  1. PENICILLIN [Concomitant]
     Active Substance: PENICILLIN
     Indication: CARDITIS
     Dosage: UNK UNK, Q3W
     Route: 065
  2. REVOLADE [Suspect]
     Active Substance: ELTROMBOPAG
     Indication: PRODUCT USED FOR UNKNOWN INDICATION
     Dosage: UNK
     Route: 065

REACTIONS (11)
  - Blood creatinine increased [Unknown]
  - Anaemia [Unknown]
  - Platelet count decreased [Unknown]
  - Carditis [Unknown]
  - Menorrhagia [Unknown]
  - Haemolytic uraemic syndrome [Unknown]
  - Rheumatic fever [Unknown]
  - Systemic lupus erythematosus [Unknown]
  - Arthralgia [Unknown]
  - Myalgia [Unknown]
  - Thrombocytosis [Unknown]
